FAERS Safety Report 25943870 (Version 1)
Quarter: 2025Q4

REPORT INFORMATION
  Report Type: Report from Study
  Country: KR (occurrence: KR)
  Receive Date: 20251021
  Receipt Date: 20251021
  Transmission Date: 20260117
  Serious: Yes (Other)
  Sender: ALEXION PHARMACEUTICALS
  Company Number: KR-AstraZeneca-CH-00852252A

PATIENT
  Sex: Female

DRUGS (2)
  1. OSIMERTINIB [Suspect]
     Active Substance: OSIMERTINIB
     Indication: Neoplasm malignant
     Dosage: 80 MILLIGRAM, QD
     Dates: start: 20250408
  2. OSIMERTINIB [Suspect]
     Active Substance: OSIMERTINIB
     Indication: Gene mutation

REACTIONS (16)
  - Urticaria [Recovered/Resolved]
  - Pruritus [Recovered/Resolved]
  - Cough [Not Recovered/Not Resolved]
  - Memory impairment [Not Recovered/Not Resolved]
  - Skin fissures [Not Recovered/Not Resolved]
  - Alopecia areata [Not Recovered/Not Resolved]
  - Skin haemorrhage [Unknown]
  - Dyspepsia [Not Recovered/Not Resolved]
  - Weight decreased [Recovered/Resolved]
  - Joint stiffness [Not Recovered/Not Resolved]
  - Skin wound [Recovered/Resolved]
  - Product dose omission in error [Recovered/Resolved]
  - Hair growth rate abnormal [Not Recovered/Not Resolved]
  - Loss of consciousness [Recovered/Resolved]
  - Limb injury [Not Recovered/Not Resolved]
  - Pain in extremity [Not Recovered/Not Resolved]

NARRATIVE: CASE EVENT DATE: 20250411
